FAERS Safety Report 12287152 (Version 1)
Quarter: 2016Q2

REPORT INFORMATION
  Report Type: Spontaneous
  Country: None (occurrence: DE)
  Receive Date: 20160420
  Receipt Date: 20160420
  Transmission Date: 20160815
  Serious: Yes (Other)
  Sender: FDA-Public Use
  Company Number: DE-MERCK KGAA-1050786

PATIENT

DRUGS (1)
  1. NOVOTHYROX [Suspect]
     Active Substance: LEVOTHYROXINE SODIUM

REACTIONS (6)
  - C-reactive protein increased [None]
  - Abdominal pain upper [None]
  - Heart rate increased [None]
  - Psychomotor hyperactivity [None]
  - Diarrhoea [None]
  - Diverticulitis [None]
